FAERS Safety Report 5328601-7 (Version None)
Quarter: 2007Q2

REPORT INFORMATION
  Report Type: 
  Country: None (occurrence: None)
  Receive Date: 20070518
  Receipt Date: 20070509
  Transmission Date: 20071010
  Serious: Yes (Hospitalization)
  Sender: FDA-Public Use
  Company Number: KR-JNJFOC-20070502518

PATIENT
  Sex: Male
  Weight: 58.5 kg

DRUGS (4)
  1. SPORANOX [Suspect]
     Route: 042
  2. SPORANOX [Suspect]
     Indication: FEBRILE NEUTROPENIA
     Route: 042
  3. MAXIPIME [Concomitant]
     Indication: FEBRILE NEUTROPENIA
     Route: 065
  4. VANCOMYCIN HCL [Concomitant]
     Indication: FEBRILE NEUTROPENIA
     Route: 065

REACTIONS (1)
  - CONFUSIONAL STATE [None]
